FAERS Safety Report 7503876-4 (Version None)
Quarter: 2011Q2

REPORT INFORMATION
  Report Type: 
  Country: None (occurrence: None)
  Receive Date: 20110525
  Receipt Date: 20110513
  Transmission Date: 20111010
  Serious: Yes (Hospitalization)
  Sender: FDA-Public Use
  Company Number: FR-SANOFI-AVENTIS-2011SA031888

PATIENT
  Age: 23 Year
  Sex: Female

DRUGS (11)
  1. PRIMPERAN TAB [Suspect]
     Route: 042
     Dates: start: 20110112, end: 20110117
  2. MIDAZOLAM HYDROCHLORIDE [Suspect]
     Route: 042
     Dates: start: 20110110, end: 20110120
  3. SUFENTA PRESERVATIVE FREE [Suspect]
     Indication: ANAESTHESIA
     Route: 042
     Dates: start: 20110110, end: 20110120
  4. PROPOFOL [Suspect]
     Indication: ANAESTHESIA
     Route: 042
     Dates: start: 20110112, end: 20110118
  5. ROCEPHIN [Suspect]
     Route: 042
     Dates: start: 20110109, end: 20110113
  6. LASIX [Suspect]
     Route: 042
     Dates: start: 20110113, end: 20110119
  7. ESOMEPRAZOLE MAGNESIUM [Suspect]
     Route: 042
     Dates: start: 20110109, end: 20110115
  8. ERYTHROMYCIN [Suspect]
     Route: 042
     Dates: start: 20110114, end: 20110117
  9. ROVAMYCINE [Suspect]
     Route: 042
     Dates: start: 20110109, end: 20110113
  10. OSELTAMIVIR [Suspect]
     Route: 065
     Dates: start: 20110109, end: 20110115
  11. HEPARIN SODIUM [Suspect]
     Indication: THROMBOSIS PROPHYLAXIS
     Route: 058
     Dates: start: 20110109, end: 20110122

REACTIONS (4)
  - CHOLESTASIS [None]
  - DRUG EXPOSURE DURING PREGNANCY [None]
  - HEPATOCELLULAR INJURY [None]
  - PROTEINURIA [None]
